FAERS Safety Report 25920947 (Version 1)
Quarter: 2025Q4

REPORT INFORMATION
  Report Type: Spontaneous
  Country: US (occurrence: US)
  Receive Date: 20251014
  Receipt Date: 20251014
  Transmission Date: 20260118
  Serious: Yes (Hospitalization)
  Sender: MYLAN
  Company Number: US-MYLANLABS-2025M1086585

PATIENT
  Age: 26 Year
  Sex: Female

DRUGS (2)
  1. INDOMETHACIN [Suspect]
     Active Substance: INDOMETHACIN
     Indication: Hemicrania continua
     Dosage: UNK
  2. BOTOX [Suspect]
     Active Substance: ONABOTULINUMTOXINA
     Indication: Hemicrania continua
     Dosage: UNK

REACTIONS (2)
  - Treatment failure [Unknown]
  - Off label use [Unknown]
